FAERS Safety Report 20809745 (Version 11)
Quarter: 2024Q3

REPORT INFORMATION
  Report Type: Spontaneous
  Country: GB (occurrence: GB)
  Receive Date: 20220510
  Receipt Date: 20240919
  Transmission Date: 20241016
  Serious: Yes (Death, Other)
  Sender: NOVARTIS
  Company Number: None

PATIENT
  Sex: Female

DRUGS (175)
  1. CIPROFLOXACIN [Suspect]
     Active Substance: CIPROFLOXACIN
     Indication: Product used for unknown indication
     Dosage: UNK (MODIFIED-RELEASE TABLET)
     Route: 065
  2. CIPROFLOXACIN [Suspect]
     Active Substance: CIPROFLOXACIN
     Dosage: UNK (GENERIC: CIPROFLOXACIN ACETATE, FORMULATION: INHALATION POWDER)
     Route: 065
  3. CIPROFLOXACIN [Suspect]
     Active Substance: CIPROFLOXACIN
     Dosage: UNK (MODIFIRED RELEASE TABLET, CIPROFLOXACIN ACETATE)
     Route: 065
  4. CIPROFLOXACIN [Suspect]
     Active Substance: CIPROFLOXACIN
     Dosage: UNK (SOLUTION FOR INFUSION) (DOSAGE FORM: INHALATION POWDER)
     Route: 065
  5. CIPROFLOXACIN [Suspect]
     Active Substance: CIPROFLOXACIN
     Dosage: UNK (INJECTION)
     Route: 065
  6. CIPROFLOXACIN [Suspect]
     Active Substance: CIPROFLOXACIN
     Dosage: 2 DOSAGE FORM (2 PUFF) AEROSOL,25MCG DRY POWDER INHALER)
     Route: 065
  7. CIPROFLOXACIN [Suspect]
     Active Substance: CIPROFLOXACIN
     Dosage: UNK (SOLUTION FOR INFUSION)
     Route: 065
  8. CIPROFLOXACIN [Suspect]
     Active Substance: CIPROFLOXACIN
     Dosage: UNK (GENERIC: CIPROFLOXACIN ACETATE, FORMULATION: INHALATION POWDER)
     Route: 065
  9. CIPROFLOXACIN [Suspect]
     Active Substance: CIPROFLOXACIN
     Dosage: 2 DOSAGE FORM (2DF (2 PUFF) AEROSOL, 25 MCG,DRY POWDER INHALER)
     Route: 055
  10. CIPROFLOXACIN [Suspect]
     Active Substance: CIPROFLOXACIN
     Dosage: UNK (FORMULATION: INHALATION POWDER)
     Route: 065
  11. CIPROFLOXACIN [Suspect]
     Active Substance: CIPROFLOXACIN
     Dosage: UNK (SOLUTION FOR INFUSION, INHALATION POWDER)
     Route: 065
  12. CIPROFLOXACIN HYDROCHLORIDE [Suspect]
     Active Substance: CIPROFLOXACIN HYDROCHLORIDE
     Indication: Product used for unknown indication
     Dosage: UNK
     Route: 065
  13. CIPROFLOXACIN LACTATE [Suspect]
     Active Substance: CIPROFLOXACIN LACTATE
     Indication: Product used for unknown indication
     Dosage: 2 DOSAGE FORM, (2 PUFFS) (AEROSOL INHALATION) [2 PUFF(S), 25 MCG) ((DRYPOWDER INHALER DEVICE INHALER
     Route: 055
  14. CIPROFLOXACIN LACTATE [Suspect]
     Active Substance: CIPROFLOXACIN LACTATE
     Dosage: UNK (MODIFIED RELEASE TABLET)
     Route: 065
  15. CIPROFLOXACIN LACTATE [Suspect]
     Active Substance: CIPROFLOXACIN LACTATE
     Dosage: UNK (SOLUTION FOR INFUSION/ INTRAVENOUS INFUSION)
     Route: 065
  16. CIPROFLOXACIN LACTATE [Suspect]
     Active Substance: CIPROFLOXACIN LACTATE
     Dosage: UNK
     Route: 065
  17. CIPROFLOXACIN LACTATE [Suspect]
     Active Substance: CIPROFLOXACIN LACTATE
     Dosage: 2 DOSAGE FORM (2 PUFFS) (AEROSOL INHALATION), 25 MCG)
     Route: 055
  18. CIPROFLOXACIN LACTATE [Suspect]
     Active Substance: CIPROFLOXACIN LACTATE
     Dosage: 2 DOSAGE FORM 2 DF, 2 PUFFS AEROSOL, 25MCG DRY POWDER
     Route: 055
  19. CIPROFLOXACIN LACTATE [Suspect]
     Active Substance: CIPROFLOXACIN LACTATE
     Dosage: UNK, MODIFIED RELEASE TABLET GENERIC FORMULATION: INHALATION POWDER
     Route: 065
  20. ONDANSETRON [Suspect]
     Active Substance: ONDANSETRON
     Indication: Product used for unknown indication
     Dosage: UNK, PRN (ORODISPERSIBLE TABLET)
     Route: 065
  21. ONDANSETRON [Suspect]
     Active Substance: ONDANSETRON
     Dosage: UNK, PRN
     Route: 065
  22. ENOXAPARIN [Suspect]
     Active Substance: ENOXAPARIN
     Indication: Product used for unknown indication
     Dosage: UNK
     Route: 065
  23. ENOXAPARIN [Suspect]
     Active Substance: ENOXAPARIN
     Dosage: UNK (SOLUTION FOR INJECTION)
     Route: 065
  24. ALBUTEROL [Suspect]
     Active Substance: ALBUTEROL
     Indication: Product used for unknown indication
     Dosage: 100 UG (ADDITIONAL INFO: SALMETEROL XINAFOATE DISKUS DRY POWDER)
     Route: 055
  25. ALBUTEROL [Suspect]
     Active Substance: ALBUTEROL
     Dosage: 100 UG (ADDITIONAL INFO: SALMETEROL XINAFOATE DISKUS DRY POWDER))
     Route: 065
  26. ALBUTEROL [Suspect]
     Active Substance: ALBUTEROL
     Dosage: UNK
     Route: 065
  27. ALBUTEROL [Suspect]
     Active Substance: ALBUTEROL
     Dosage: 100 UG
     Route: 055
  28. ALBUTEROL [Suspect]
     Active Substance: ALBUTEROL
     Dosage: 100 UG, PRN
     Route: 065
  29. ALBUTEROL [Suspect]
     Active Substance: ALBUTEROL
     Dosage: 110 UG (100 MG INHALATIONAL POWDER)
     Route: 065
  30. ALBUTEROL [Suspect]
     Active Substance: ALBUTEROL
     Dosage: 110 UG
     Route: 065
  31. ALBUTEROL [Suspect]
     Active Substance: ALBUTEROL
     Dosage: 25 UG (AEROSOL INHALATION CFC FREE 2 PUFF(S))
     Route: 065
  32. ALBUTEROL [Suspect]
     Active Substance: ALBUTEROL
     Dosage: 2 DOSAGE FORM (2 DF (2 PUFFS)(AEROSOL INHALATION)2 PUFF(S) 25 MCG(DRY POWDER INHALER DEVICE INHALE)
     Route: 050
  33. ALBUTEROL [Suspect]
     Active Substance: ALBUTEROL
     Dosage: 110 UG
     Route: 050
  34. ALBUTEROL [Suspect]
     Active Substance: ALBUTEROL
     Dosage: 25 UG (AEROSOL INHALATION CFC FREE 2 PUFF(S))
     Route: 050
  35. ALBUTEROL [Suspect]
     Active Substance: ALBUTEROL
     Dosage: 100 UG (ADDITIONAL INFO: SALMETEROL XINAFOATE DISKUS DRY POWDER))
     Route: 050
  36. ALBUTEROL [Suspect]
     Active Substance: ALBUTEROL
     Dosage: 110 UG
     Route: 055
  37. ALBUTEROL [Suspect]
     Active Substance: ALBUTEROL
     Dosage: 25 UG
     Route: 055
  38. ALBUTEROL [Suspect]
     Active Substance: ALBUTEROL
     Dosage: 2 DOSAGE FORM (2 PUFF(S))
     Route: 055
  39. ALBUTEROL [Suspect]
     Active Substance: ALBUTEROL
     Dosage: 25 MICROGRAMS
     Route: 065
  40. ALBUTEROL [Suspect]
     Active Substance: ALBUTEROL
     Dosage: 25 MICROGRAM (AEROSOL INHALATION (CFC FREE)
     Route: 065
  41. ALBUTEROL [Suspect]
     Active Substance: ALBUTEROL
     Dosage: 25 MICROGRAM (AEROSOL INHALATION (CFC FREE) 2 PUFF(S))
     Route: 065
  42. ALBUTEROL [Suspect]
     Active Substance: ALBUTEROL
     Dosage: 25 MICROGRAM FOR ENDOSINUSIAL SOLUTION
     Route: 065
  43. ALBUTEROL [Suspect]
     Active Substance: ALBUTEROL
     Dosage: 100 MCG, PRN
     Route: 065
  44. ALBUTEROL [Suspect]
     Active Substance: ALBUTEROL
     Dosage: 25 MICROGRAMS AEROSOL (CFC FREE)2 PUFF
     Route: 055
  45. ALBUTEROL [Suspect]
     Active Substance: ALBUTEROL
     Dosage: 25 MG (AEROSOL INHALATION (CFC FREE) 2 PUFF
     Route: 065
  46. ALBUTEROL [Suspect]
     Active Substance: ALBUTEROL
     Dosage: 100 MICROGRAM, PRN
     Route: 065
  47. ALBUTEROL [Suspect]
     Active Substance: ALBUTEROL
     Dosage: 100 MICROGRAM(CFC-FREE INHALER 100 MICROGRAMS)
     Route: 065
  48. ALBUTEROL [Suspect]
     Active Substance: ALBUTEROL
     Dosage: 110 MICROGRAM
     Route: 055
  49. ALBUTEROL [Suspect]
     Active Substance: ALBUTEROL
     Dosage: 100 UG, SALMETEROL XINAFOATE DISKUS DRY POWDER
     Route: 065
  50. SALMETEROL XINAFOATE [Suspect]
     Active Substance: SALMETEROL XINAFOATE
     Indication: Product used for unknown indication
     Dosage: 100 UG (SALMETEROL XINAFOATE DISKUS DRY POWDER INHALER DEVICE)
     Route: 055
  51. SALMETEROL XINAFOATE [Suspect]
     Active Substance: SALMETEROL XINAFOATE
     Dosage: 25 UG (SALMETEROL XINAFOATE DISKUS DRY POWDER)
     Route: 065
  52. SALMETEROL XINAFOATE [Suspect]
     Active Substance: SALMETEROL XINAFOATE
     Dosage: 25 UG (SALMETEROL XINAFOATE DISKUS DRY POWDER)
     Route: 055
  53. SALMETEROL XINAFOATE [Suspect]
     Active Substance: SALMETEROL XINAFOATE
     Dosage: 2 DOSAGE FORM (2 DF (2 PUFFS) (AEROSOL INHALATION) [2 PUFF(S), 25 MCG) ((DRYPOWDER INHALER DEVICE IN
     Route: 055
  54. SALMETEROL XINAFOATE [Suspect]
     Active Substance: SALMETEROL XINAFOATE
     Dosage: 100 MG (SALMETEROL XINAFOATE DISKUS DRY POWDER)
     Route: 055
  55. SALMETEROL XINAFOATE [Suspect]
     Active Substance: SALMETEROL XINAFOATE
     Dosage: 25 UG (SALMETEROL XINAFOATE DISKUS DRY POWDER)
     Route: 055
  56. SALMETEROL XINAFOATE [Suspect]
     Active Substance: SALMETEROL XINAFOATE
     Dosage: 2 DOSAGE FORM (DOSAGE FORM (2 DF (2 PUFFS) (AEROSOL INHALATION)) (SALMETEROL XINAFOATE DISKUS DRY PO
     Route: 055
  57. SALMETEROL XINAFOATE [Suspect]
     Active Substance: SALMETEROL XINAFOATE
     Dosage: 25 UG (2 PUFF(S) (SALMETEROL XINAFOATE DISKUS DRY POWDER)
     Route: 055
  58. SALMETEROL XINAFOATE [Suspect]
     Active Substance: SALMETEROL XINAFOATE
     Dosage: 100 UG (SALMETEROL XINAFOATE DISKUS DRY POWDER INHALER DEVICE)
     Route: 055
  59. SALMETEROL XINAFOATE [Suspect]
     Active Substance: SALMETEROL XINAFOATE
     Dosage: 25 UG (25 MICROGRAM(POWDER AND SOLVENT FOR ENDOSINUSIAL SOLUTION)
     Route: 055
  60. SALMETEROL XINAFOATE [Suspect]
     Active Substance: SALMETEROL XINAFOATE
     Dosage: 2 DOSAGE FORM (2DF (25 MCG (DRY POWDER INHALER DEVICE INHALER));SALMETEROL XINAFOATE DISKUS DRY POWD
     Route: 055
  61. SALMETEROL XINAFOATE [Suspect]
     Active Substance: SALMETEROL XINAFOATE
     Dosage: 2 DOSAGE FORM (2 DF (2 PUFFS) (AEROSOL INHALATION); SALMETEROL XINAFOATE DISKUS DRY POWDER
     Route: 055
  62. SALMETEROL XINAFOATE [Suspect]
     Active Substance: SALMETEROL XINAFOATE
     Dosage: 2 DOSAGE FORM (2 DF (2 PUFFS) (AEROSOL INHALATION); SALMETEROL XINAFOATE DISKUS DRY POWDER
     Route: 055
  63. SALMETEROL XINAFOATE [Suspect]
     Active Substance: SALMETEROL XINAFOATE
     Dosage: 100 UG (SALMETEROL XINAFOATE DISKUS DRY POWDER INHALER DEVICE)
     Route: 055
  64. SALMETEROL XINAFOATE [Suspect]
     Active Substance: SALMETEROL XINAFOATE
     Dosage: 25 UG (25 UG, POWDER AND SOLVENT FOR ENDOSINUSIAL SOLUTION;)
     Route: 055
  65. SALMETEROL XINAFOATE [Suspect]
     Active Substance: SALMETEROL XINAFOATE
     Dosage: 2 DOSAGE FORM (2 PUFF(S), 25MCG, SALMETEROL XINAFOATE DISKUS DRY POWDER)
     Route: 055
  66. SALMETEROL XINAFOATE [Suspect]
     Active Substance: SALMETEROL XINAFOATE
     Dosage: 2 DOSAGE FORM (2 DF (2 PUFFS) (AEROSOL INHALATION) [2 PUFF(S), 25 MCG) ((DRYPOWDER INHALER DEVICE IN
     Route: 065
  67. SALMETEROL XINAFOATE [Suspect]
     Active Substance: SALMETEROL XINAFOATE
     Dosage: 25 UG (2 PUFF(S), POWDER AND SOLVENT FOR ENDOSINUSIAL SOLUTION, SALMETEROL XINAFOATE DISKUS DRY POWD
     Route: 055
  68. SALMETEROL XINAFOATE [Suspect]
     Active Substance: SALMETEROL XINAFOATE
     Dosage: 25 UG (POWDER AND SOLVENT FOR ENDOSINUSIAL SOLUTION)
     Route: 050
  69. SALMETEROL XINAFOATE [Suspect]
     Active Substance: SALMETEROL XINAFOATE
     Dosage: 110 UG
     Route: 050
  70. SALMETEROL XINAFOATE [Suspect]
     Active Substance: SALMETEROL XINAFOATE
     Dosage: 100 UG
     Route: 050
  71. SALMETEROL XINAFOATE [Suspect]
     Active Substance: SALMETEROL XINAFOATE
     Dosage: 2 DOSAGE FORM, PRN ( PRN, 2 DF (2 PUFFS) (AEROSOL INHALATION) 2 PUFFS, 25 MCG (DRY POWDER INHALER DE
     Route: 050
  72. SALMETEROL XINAFOATE [Suspect]
     Active Substance: SALMETEROL XINAFOATE
     Dosage: 110 UG
     Route: 055
  73. SALMETEROL XINAFOATE [Suspect]
     Active Substance: SALMETEROL XINAFOATE
     Dosage: 2 DOSAGE FORM (2DF)
     Route: 055
  74. SALMETEROL XINAFOATE [Suspect]
     Active Substance: SALMETEROL XINAFOATE
     Dosage: 100 UG
     Route: 055
  75. SALMETEROL XINAFOATE [Suspect]
     Active Substance: SALMETEROL XINAFOATE
     Dosage: 25 UG
     Route: 055
  76. SALMETEROL XINAFOATE [Suspect]
     Active Substance: SALMETEROL XINAFOATE
     Dosage: 2 DF (2 PUFFS) (AEROSOL INHALATION) [2 PUFF(S), 25 MCG (DRYPOWDER INHALER DEVICE INHALER);
     Route: 055
  77. SALMETEROL XINAFOATE [Suspect]
     Active Substance: SALMETEROL XINAFOATE
     Dosage: 25 UG, UNK;
     Route: 055
  78. SALMETEROL XINAFOATE [Suspect]
     Active Substance: SALMETEROL XINAFOATE
     Dosage: 25 MICROGRAM (2 PUFF(S))
     Route: 055
  79. SALMETEROL XINAFOATE [Suspect]
     Active Substance: SALMETEROL XINAFOATE
     Dosage: 2DF (25 MCG (DRY POWDER INHALER DEVICE INHALER));
     Route: 055
  80. SALMETEROL XINAFOATE [Suspect]
     Active Substance: SALMETEROL XINAFOATE
     Dosage: 100 UG, UNK;
     Route: 055
  81. SALMETEROL XINAFOATE [Suspect]
     Active Substance: SALMETEROL XINAFOATE
     Dosage: 2 PUFF(S), POWDER AND SOLVENT FOR ENDOSINUSIAL SOLUTION
     Route: 055
  82. SALMETEROL XINAFOATE [Suspect]
     Active Substance: SALMETEROL XINAFOATE
     Dosage: 2 DF (2 PUFFS) (AEROSOL INHALATION) [2 PUFF(S), 25 MCG;
     Route: 065
  83. SALMETEROL XINAFOATE [Suspect]
     Active Substance: SALMETEROL XINAFOATE
     Dosage: 25 MICROGRAM, UNK
     Route: 055
  84. SALMETEROL XINAFOATE [Suspect]
     Active Substance: SALMETEROL XINAFOATE
     Dosage: 100 MICROGRAM;
     Route: 055
  85. SALMETEROL XINAFOATE [Suspect]
     Active Substance: SALMETEROL XINAFOATE
     Dosage: 25 UG (ALMETEROL XINAFOATE DISKUS DRY POWDER)
     Route: 065
  86. SALMETEROL XINAFOATE [Suspect]
     Active Substance: SALMETEROL XINAFOATE
     Dosage: 100 MG;
     Route: 055
  87. SALMETEROL XINAFOATE [Suspect]
     Active Substance: SALMETEROL XINAFOATE
     Dosage: 100 UG, UNK;
     Route: 055
  88. SALMETEROL XINAFOATE [Suspect]
     Active Substance: SALMETEROL XINAFOATE
     Dosage: 25 UG, POWDER AND SOLVENT FOR ENDOSINUSIAL SOLUTION;
     Route: 055
  89. SALMETEROL XINAFOATE [Suspect]
     Active Substance: SALMETEROL XINAFOATE
     Dosage: 2 DOSAGE FORM (2 DF (2 PUFFS) (AEROSOL INHALATION);
     Route: 055
  90. SALMETEROL XINAFOATE [Suspect]
     Active Substance: SALMETEROL XINAFOATE
     Dosage: 25 UG, 2 PUFF(S), POWDER AND SOLVENT FOR ENDOSINUSIAL SOLUTION
     Route: 055
  91. SALMETEROL XINAFOATE [Suspect]
     Active Substance: SALMETEROL XINAFOATE
     Dosage: 100 UG, PRN
     Route: 065
  92. SALMETEROL XINAFOATE [Suspect]
     Active Substance: SALMETEROL XINAFOATE
     Dosage: 100 UG, UNK;
     Route: 055
  93. SALMETEROL XINAFOATE [Suspect]
     Active Substance: SALMETEROL XINAFOATE
     Dosage: 2 DOSAGE FORM (2 DF (2 PUFFS) (AEROSOL INHALATION);
     Route: 055
  94. SALMETEROL XINAFOATE [Suspect]
     Active Substance: SALMETEROL XINAFOATE
     Dosage: 2 PUFF(S), 25MCG;
     Route: 055
  95. SALMETEROL XINAFOATE [Suspect]
     Active Substance: SALMETEROL XINAFOATE
     Dosage: 25 MICROGRAM(POWDER AND SOLVENT FOR ENDOSINUSIAL SOLUTION);
     Route: 055
  96. SALMETEROL XINAFOATE [Suspect]
     Active Substance: SALMETEROL XINAFOATE
     Dosage: 2 DF (2 PUFFS) (AEROSOL INHALATION) [2 PUFF(S), 25 MCG (DRYPOWDER INHALER DEVICE INHALER);
     Route: 055
  97. SALMETEROL XINAFOATE [Suspect]
     Active Substance: SALMETEROL XINAFOATE
     Dosage: 2 PUFF, POWDER, SOLVENT FOR ENDOSINUSIAL SOL,
     Route: 055
  98. SALMETEROL XINAFOATE [Suspect]
     Active Substance: SALMETEROL XINAFOATE
     Dosage: 100 MICROGRAM
     Route: 055
  99. SALMETEROL XINAFOATE [Suspect]
     Active Substance: SALMETEROL XINAFOATE
     Dosage: 25 UG, UNK;
     Route: 055
  100. SALMETEROL XINAFOATE [Suspect]
     Active Substance: SALMETEROL XINAFOATE
     Dosage: 100 UG, UNK;
     Route: 055
  101. SALMETEROL XINAFOATE [Suspect]
     Active Substance: SALMETEROL XINAFOATE
     Dosage: 2 DF 2 PUFFS AEROSOL INHALATION)
     Route: 055
  102. ALBUTEROL SULFATE [Suspect]
     Active Substance: ALBUTEROL SULFATE
     Indication: Product used for unknown indication
     Dosage: 100 UG
     Route: 055
  103. ALBUTEROL SULFATE [Suspect]
     Active Substance: ALBUTEROL SULFATE
     Dosage: 100 UG
     Route: 065
  104. ALBUTEROL SULFATE [Suspect]
     Active Substance: ALBUTEROL SULFATE
     Dosage: UNK
     Route: 065
  105. ALBUTEROL SULFATE [Suspect]
     Active Substance: ALBUTEROL SULFATE
     Dosage: 100 MICROGRAM
     Route: 055
  106. ALBUTEROL SULFATE [Suspect]
     Active Substance: ALBUTEROL SULFATE
     Dosage: 110 MICROGRAM
     Route: 055
  107. ALBUTEROL SULFATE [Suspect]
     Active Substance: ALBUTEROL SULFATE
     Dosage: UNK
     Route: 055
  108. ALBUTEROL SULFATE [Suspect]
     Active Substance: ALBUTEROL SULFATE
     Dosage: 25 MCG (AEROSOL INHALATION (CFC FREE)
     Route: 055
  109. ALBUTEROL SULFATE [Suspect]
     Active Substance: ALBUTEROL SULFATE
     Dosage: 100 UG
     Route: 065
  110. ALBUTEROL SULFATE [Suspect]
     Active Substance: ALBUTEROL SULFATE
     Dosage: 10 UG
     Route: 065
  111. ALBUTEROL SULFATE [Suspect]
     Active Substance: ALBUTEROL SULFATE
     Dosage: 100 UG, UNK; CFC -FREE INHALER)
     Route: 055
  112. ALBUTEROL SULFATE [Suspect]
     Active Substance: ALBUTEROL SULFATE
     Dosage: 100 UG, UNK
     Route: 065
  113. ALBUTEROL SULFATE [Suspect]
     Active Substance: ALBUTEROL SULFATE
     Dosage: 110 UG
     Route: 065
  114. ALBUTEROL SULFATE [Suspect]
     Active Substance: ALBUTEROL SULFATE
     Dosage: 100 UG (UNK; CFC -FREE INHALER)
     Route: 065
  115. ALBUTEROL SULFATE [Suspect]
     Active Substance: ALBUTEROL SULFATE
     Dosage: 2 DF(2 PUFFS)(AEROSOL INHALATION) 25 ,MCG
     Route: 065
  116. ALBUTEROL SULFATE [Suspect]
     Active Substance: ALBUTEROL SULFATE
     Dosage: 2 DOSAGE FORM, PRN
     Route: 065
  117. ALBUTEROL SULFATE [Suspect]
     Active Substance: ALBUTEROL SULFATE
     Dosage: 110 UG
     Route: 065
  118. ALBUTEROL SULFATE [Suspect]
     Active Substance: ALBUTEROL SULFATE
     Dosage: 2 DOSAGE FORM (2 PUFFS) 25 MCG
     Route: 065
  119. SALMETEROL [Suspect]
     Active Substance: SALMETEROL
     Indication: Product used for unknown indication
     Dosage: UNK (DISKUS DRY POWDER INHALER DEVICE)
     Route: 065
  120. SALMETEROL [Suspect]
     Active Substance: SALMETEROL
     Dosage: 110 UG
     Route: 065
  121. SALMETEROL [Suspect]
     Active Substance: SALMETEROL
     Dosage: 100 UG
     Route: 055
  122. SALMETEROL [Suspect]
     Active Substance: SALMETEROL
     Dosage: 25 UG (POWDER FOR ENDOSINUSIAL SOLUTION 25 MICROGRAM)
     Route: 055
  123. SALMETEROL [Suspect]
     Active Substance: SALMETEROL
     Dosage: 2 DOSAGE FORM  (2 PUFFS) (AEROSOL INHALATION) 25 MCG
     Route: 055
  124. SALMETEROL [Suspect]
     Active Substance: SALMETEROL
     Dosage: UNK
     Route: 065
  125. SEREVENT DISKUS [Suspect]
     Active Substance: SALMETEROL XINAFOATE
     Indication: Product used for unknown indication
     Dosage: 2 DOSAGE FORM (2 DF (2 PUFFS) (AEROSOL INHALATION) [2 PUFF(S), 25 MCG) ((DRY POWDER INHALER DEVICE I
     Route: 055
  126. SEREVENT DISKUS [Suspect]
     Active Substance: SALMETEROL XINAFOATE
     Dosage: 100 UG ADDITIONAL INFO: SALMETEROL XINAFOATE DISKUS DRY POWDER INHALER DEVICE
     Route: 055
  127. SEREVENT DISKUS [Suspect]
     Active Substance: SALMETEROL XINAFOATE
     Dosage: 25 UG (2 DF (2 PUFFS (DRY POWDER INHALER DEVICE INHALER) (SALMETEROL XINAFOATE DISKUS DRY POWDER))
     Route: 055
  128. SEREVENT DISKUS [Suspect]
     Active Substance: SALMETEROL XINAFOATE
     Dosage: 2 DOSAGE FORM (2 DOSAGE FORM,2 PUFF(S)) (SALMETEROL XINAFOATE DISKUS DRY POWDER)
     Route: 055
  129. SEREVENT DISKUS [Suspect]
     Active Substance: SALMETEROL XINAFOATE
     Dosage: 2 DOSAGE FORM (2 PUFF(S), 25MCG) (SALMETEROL XINAFOATE DISKUS DRY POWDER)
     Route: 055
  130. SEREVENT DISKUS [Suspect]
     Active Substance: SALMETEROL XINAFOATE
     Dosage: 25 UG (2 DF (2 PUFFS) (AEROSOL INHALATION) (2 PUFF(S), 25 MCG) ((DRY POWDER INHALER DEVICE INHALER))
     Route: 055
  131. SEREVENT DISKUS [Suspect]
     Active Substance: SALMETEROL XINAFOATE
     Dosage: 100 UG (SALMETEROL XINAFOATE DISKUS DRY POWDER)
     Route: 055
  132. SEREVENT DISKUS [Suspect]
     Active Substance: SALMETEROL XINAFOATE
     Dosage: 25 UG (2 PUFF(S))
     Route: 055
  133. SEREVENT DISKUS [Suspect]
     Active Substance: SALMETEROL XINAFOATE
     Dosage: 25 UG (25 MICROGRAMS 2 PUFF(S)) (SALMETEROL XINAFOATE DISKUS DRY POWDER)
     Route: 055
  134. SEREVENT DISKUS [Suspect]
     Active Substance: SALMETEROL XINAFOATE
     Dosage: 25 UG (25 MICROGRAM 2 PUFF(S)) (SALMETEROL XINAFOATE DISKUS DRY POWDER)
     Route: 055
  135. SEREVENT DISKUS [Suspect]
     Active Substance: SALMETEROL XINAFOATE
     Dosage: 100 UG
     Route: 065
  136. SEREVENT DISKUS [Suspect]
     Active Substance: SALMETEROL XINAFOATE
     Dosage: 100 UG ((SALMETEROL XINAFOATE DISKUS DRY POWDER)
     Route: 050
  137. SEREVENT DISKUS [Suspect]
     Active Substance: SALMETEROL XINAFOATE
     Dosage: 25 MICROGRAM, POWDER FOR ENDOSINUSIAL SOLUTION
     Route: 055
  138. SEREVENT DISKUS [Suspect]
     Active Substance: SALMETEROL XINAFOATE
     Dosage: SALMETEROL XINAFOATE DISKUS DRY POWDER INHALER
     Route: 055
  139. SEREVENT DISKUS [Suspect]
     Active Substance: SALMETEROL XINAFOATE
     Dosage: 110 MICROGRAM
     Route: 065
  140. SEREVENT DISKUS [Suspect]
     Active Substance: SALMETEROL XINAFOATE
     Dosage: 100 MICROGRAM;
     Route: 055
  141. SEREVENT DISKUS [Suspect]
     Active Substance: SALMETEROL XINAFOATE
     Dosage: 25 MICROGRAM 2 PUFF(S)
     Route: 055
  142. SEREVENT DISKUS [Suspect]
     Active Substance: SALMETEROL XINAFOATE
     Dosage: 2 DOSAGE FORM, 2 PUFF(S)
     Route: 055
  143. SEREVENT DISKUS [Suspect]
     Active Substance: SALMETEROL XINAFOATE
     Dosage: 2DF(2PUFF)AEROSOL,25MCG,INHALER
     Route: 055
  144. SEREVENT DISKUS [Suspect]
     Active Substance: SALMETEROL XINAFOATE
     Dosage: 100 MICROGRAM;
     Route: 055
  145. SEREVENT DISKUS [Suspect]
     Active Substance: SALMETEROL XINAFOATE
     Dosage: 100 MICROGRAM, PRN
     Route: 055
  146. SEREVENT DISKUS [Suspect]
     Active Substance: SALMETEROL XINAFOATE
     Dosage: 2 DF (2 PUFFS) (AEROSOL INHALATION)
     Route: 055
  147. SEREVENT DISKUS [Suspect]
     Active Substance: SALMETEROL XINAFOATE
     Dosage: 2 DOSAGE FORM,2 PUFF(S)
     Route: 055
  148. SEREVENT DISKUS [Suspect]
     Active Substance: SALMETEROL XINAFOATE
     Dosage: 2DF(2PUFF)AEROSOL,25MCG
     Route: 055
  149. SEREVENT DISKUS [Suspect]
     Active Substance: SALMETEROL XINAFOATE
     Dosage: 100 MICROGRAM
     Route: 055
  150. SEREVENT DISKUS [Suspect]
     Active Substance: SALMETEROL XINAFOATE
     Dosage: 25 MICROGRAM 2 PUFF(S)
     Route: 055
  151. SEREVENT DISKUS [Suspect]
     Active Substance: SALMETEROL XINAFOATE
     Dosage: 2 DOSAGE FORM,2 PUFF(S);
     Route: 055
  152. ALBUTEROL SULFATE [Suspect]
     Active Substance: ALBUTEROL SULFATE
     Indication: Product used for unknown indication
     Dosage: 10 UG ((ADDITIONAL INFO: SALMETEROL XINAFOATE DISKUS DRY PO)
     Route: 065
  153. ALBUTEROL SULFATE [Suspect]
     Active Substance: ALBUTEROL SULFATE
     Dosage: 10 UG (ADDITIONAL INFO: SALMETEROL XINAFOATE DISKUS DRY PO)
     Route: 065
  154. ALBUTEROL SULFATE [Suspect]
     Active Substance: ALBUTEROL SULFATE
     Dosage: 2 DOSAGE FORM (2 DF (2 PUFFS) (AEROSOL INHALATION) 25 MCG)
     Route: 055
  155. ALBUTEROL SULFATE [Suspect]
     Active Substance: ALBUTEROL SULFATE
     Dosage: 100 UG(ADDITIONAL INFO: SALMETEROL XINAFOATE DISKUS DRY PO)
     Route: 065
  156. ALBUTEROL SULFATE [Suspect]
     Active Substance: ALBUTEROL SULFATE
     Dosage: 100 UG (ADDITIONAL INFO: SALMETEROL XINAFOATE DISKUS DRY PO)
     Route: 055
  157. ALBUTEROL SULFATE [Suspect]
     Active Substance: ALBUTEROL SULFATE
     Dosage: UNK (ADDITIONAL INFO: SALMETEROL XINAFOATE DISKUS DRY PO)
     Route: 065
  158. ALBUTEROL SULFATE [Suspect]
     Active Substance: ALBUTEROL SULFATE
     Dosage: 100 UG, UNK (ADDITIONAL INFO: SALMETEROL XINAFOATE DISKUS DRY PO)
     Route: 065
  159. ALBUTEROL SULFATE [Suspect]
     Active Substance: ALBUTEROL SULFATE
     Dosage: 100 UG, UNK; CFC -FREE INHALER) (ADDITIONAL INFO: SALMETEROL XINAFOATE DISKUS DRY PO)
     Route: 055
  160. ALBUTEROL SULFATE [Suspect]
     Active Substance: ALBUTEROL SULFATE
     Dosage: UNK (ADDITIONAL INFO: SALMETEROL XINAFOATE DISKUS DRY PO)
     Route: 065
  161. ALBUTEROL SULFATE [Suspect]
     Active Substance: ALBUTEROL SULFATE
     Dosage: 2 DOSAGE FORM, PRN (ADDITIONAL INFO: SALMETEROL XINAFOATE DISKUS DRY PO)
     Route: 055
  162. ALBUTEROL SULFATE [Suspect]
     Active Substance: ALBUTEROL SULFATE
     Dosage: UNK (ADDITIONAL INFO: SALMETEROL XINAFOATE DISKUS DRY PO)
     Route: 065
  163. ALBUTEROL SULFATE [Suspect]
     Active Substance: ALBUTEROL SULFATE
     Dosage: 110 UG (ADDITIONAL INFO: SALMETEROL XINAFOATE DISKUS DRY PO)
     Route: 065
  164. ALBUTEROL SULFATE [Suspect]
     Active Substance: ALBUTEROL SULFATE
     Dosage: 110 UG (ADDITIONAL INFO: SALMETEROL XINAFOATE DISKUS DRY PO)
     Route: 055
  165. ALBUTEROL SULFATE [Suspect]
     Active Substance: ALBUTEROL SULFATE
     Dosage: 110 UG (ADDITIONAL INFO: SALMETEROL XINAFOATE DISKUS DRY PO)
     Route: 065
  166. ALBUTEROL SULFATE [Suspect]
     Active Substance: ALBUTEROL SULFATE
     Dosage: UNK (ADDITIONAL INFO: SALMETEROL XINAFOATE DISKUS DRY PO)
     Route: 065
  167. ALBUTEROL SULFATE [Suspect]
     Active Substance: ALBUTEROL SULFATE
     Dosage: 110 UG (ADDITIONAL INFO: SALMETEROL XINAFOATE DISKUS DRY PO)
     Route: 065
  168. ALBUTEROL SULFATE [Suspect]
     Active Substance: ALBUTEROL SULFATE
     Dosage: 10 UG (ADDITIONAL INFO: SALMETEROL XINAFOATE DISKUS DRY PO)
     Route: 065
  169. ALBUTEROL SULFATE [Suspect]
     Active Substance: ALBUTEROL SULFATE
     Dosage: 110 UG (ADDITIONAL INFO: SALMETEROL XINAFOATE DISKUS DRY PO)
     Route: 065
  170. ALBUTEROL SULFATE [Suspect]
     Active Substance: ALBUTEROL SULFATE
     Dosage: 110 UG (ADDITIONAL INFO: SALMETEROL XINAFOATE DISKUS DRY PO)
     Route: 065
  171. ALBUTEROL SULFATE [Suspect]
     Active Substance: ALBUTEROL SULFATE
     Dosage: 110 UG (ADDITIONAL INFO: SALMETEROL XINAFOATE DISKUS DRY PO)
     Route: 065
  172. ALBUTEROL SULFATE [Suspect]
     Active Substance: ALBUTEROL SULFATE
     Dosage: 10 UG(ADDITIONAL INFO: SALMETEROL XINAFOATE DISKUS DRY PO)
     Route: 065
  173. ALBUTEROL SULFATE [Suspect]
     Active Substance: ALBUTEROL SULFATE
     Dosage: 10 UG (ADDITIONAL INFO: SALMETEROL XINAFOATE DISKUS DRY PO)
     Route: 065
  174. ONDANSETRON HYDROCHLORIDE [Suspect]
     Active Substance: ONDANSETRON HYDROCHLORIDE
     Indication: Product used for unknown indication
     Dosage: UNK
     Route: 065
  175. ALBUTEROL [Suspect]
     Active Substance: ALBUTEROL
     Indication: Product used for unknown indication
     Dosage: UNK
     Route: 065

REACTIONS (4)
  - Death [Fatal]
  - Dysphonia [Fatal]
  - Dysphonia [Fatal]
  - Dysphonia [Not Recovered/Not Resolved]
